FAERS Safety Report 4350817-7 (Version None)
Quarter: 2004Q2

REPORT INFORMATION
  Report Type: 
  Country: None (occurrence: None)
  Receive Date: 20040427
  Receipt Date: 20040408
  Transmission Date: 20050107
  Serious: Yes (Hospitalization)
  Sender: FDA-Public Use
  Company Number: CEL-2004-00656-ROC

PATIENT
  Age: 10 Year
  Sex: Female
  Weight: 82 kg

DRUGS (2)
  1. METADATE CD [Suspect]
     Indication: ATTENTION DEFICIT/HYPERACTIVITY DISORDER
     Dosage: 40MG ONCE DAILY      ; SEVERAL YEARS AGO
  2. METHYLPHENIDATE (BRAND UNSPECIFIED ) METHYLPHENIDATE [Suspect]
     Indication: ATTENTION DEFICIT/HYPERACTIVITY DISORDER
     Dosage: 10 MG FREQUENCY AND ROUTE UNKNOWN

REACTIONS (1)
  - HEPATIC FAILURE [None]
